FAERS Safety Report 8607320-5 (Version None)
Quarter: 2012Q3

REPORT INFORMATION
  Report Type: 
  Country: None (occurrence: None)
  Receive Date: 20120808
  Receipt Date: 20120729
  Transmission Date: 20120928
  Serious: Yes (Other)
  Sender: FDA-Public Use
  Company Number: 2012SA054880

PATIENT
  Age: 49 Year
  Sex: Female

DRUGS (1)
  1. CAPZASIN [Suspect]
     Indication: ARTHRALGIA
     Dosage: TOPICAL
     Route: 061
     Dates: start: 20120729, end: 20120729

REACTIONS (1)
  - APPLICATION SITE BURN [None]
